FAERS Safety Report 9527982 (Version 1)
Quarter: 2013Q3

REPORT INFORMATION
  Report Type: Report from Study
  Country: GB (occurrence: GB)
  Receive Date: 20130917
  Receipt Date: 20130917
  Transmission Date: 20140515
  Serious: Yes (Hospitalization)
  Sender: FDA-Public Use
  Company Number: GB-JNJFOC-20130904507

PATIENT
  Age: 57 Year
  Sex: Female
  Weight: 93 kg

DRUGS (3)
  1. USTEKINUMAB [Suspect]
     Indication: PSORIASIS
     Route: 058
     Dates: start: 20121106
  2. CO-CODAMOL [Concomitant]
     Route: 065
     Dates: start: 20100701
  3. CO-DYDRAMOL [Concomitant]
     Route: 065
     Dates: start: 20100701

REACTIONS (1)
  - Salpingo-oophorectomy [Recovered/Resolved]
